FAERS Safety Report 10048362 (Version 2)
Quarter: 2014Q2

REPORT INFORMATION
  Report Type: Spontaneous
  Country: KR (occurrence: KR)
  Receive Date: 20140331
  Receipt Date: 20140415
  Transmission Date: 20141212
  Serious: Yes (Other)
  Sender: FDA-Public Use
  Company Number: KR-GLAXOSMITHKLINE-B0980768A

PATIENT
  Age: 56 Year
  Sex: Female

DRUGS (1)
  1. LAPATINIB [Suspect]
     Indication: METASTASES TO LIVER
     Route: 065

REACTIONS (5)
  - Punctate keratitis [Recovered/Resolved]
  - Keratopathy [Recovered/Resolved]
  - Ocular discomfort [Unknown]
  - Rash [Unknown]
  - Corneal erosion [Unknown]
